FAERS Safety Report 4528576-4 (Version None)
Quarter: 2004Q4

REPORT INFORMATION
  Report Type: 
  Country: None (occurrence: None)
  Receive Date: 20041216
  Receipt Date: 20041208
  Transmission Date: 20050328
  Serious: Yes (Congenital Anomaly)
  Sender: FDA-Public Use
  Company Number: PHBS2004PL16652

PATIENT
  Sex: Male
  Weight: 4 kg

DRUGS (1)
  1. CLOZAPINE [Suspect]
     Route: 064

REACTIONS (21)
  - ARRHYTHMIA [None]
  - CARDIAC DISORDER [None]
  - COMA NEONATAL [None]
  - CONGENITAL CENTRAL NERVOUS SYSTEM ANOMALY [None]
  - CONGENITAL FLOPPY INFANT [None]
  - CONVULSION [None]
  - CONVULSION NEONATAL [None]
  - DEVELOPMENTAL DELAY [None]
  - DYSPNOEA [None]
  - FOETAL MALPOSITION [None]
  - HERNIA CONGENITAL [None]
  - HYPERSOMNIA [None]
  - HYPOTONIA [None]
  - HYPOXIC ENCEPHALOPATHY [None]
  - MICROGENIA [None]
  - MYOCARDITIS [None]
  - NEONATAL APNOEIC ATTACK [None]
  - NEONATAL ASPHYXIA [None]
  - NEONATAL RESPIRATORY DEPRESSION [None]
  - OPISTHOTONUS [None]
  - PHYSICAL TESTICLE EXAMINATION ABNORMAL [None]
